FAERS Safety Report 15572974 (Version 3)
Quarter: 2019Q4

REPORT INFORMATION
  Report Type: Spontaneous
  Country: US (occurrence: US)
  Receive Date: 20181031
  Receipt Date: 20191126
  Transmission Date: 20200122
  Serious: Yes (Other)
  Sender: FDA-Public Use
  Company Number: US-SA-2018SA296880

PATIENT
  Age: 22 Year
  Sex: Male

DRUGS (2)
  1. DUPIXENT [Suspect]
     Active Substance: DUPILUMAB
     Indication: DERMATITIS ATOPIC
     Dosage: 1 DF, QOW
     Route: 058
  2. DUPIXENT [Suspect]
     Active Substance: DUPILUMAB
     Indication: PRURITUS
     Dosage: 300 MG, QOW
     Route: 058
     Dates: start: 20170601, end: 20181201

REACTIONS (1)
  - Conjunctivitis [Unknown]

NARRATIVE: CASE EVENT DATE: 20181023
